FAERS Safety Report 19244863 (Version 1)
Quarter: 2021Q2

REPORT INFORMATION
  Report Type: Spontaneous
  Country: US (occurrence: US)
  Receive Date: 20210512
  Receipt Date: 20210512
  Transmission Date: 20210717
  Serious: Yes (Other)
  Sender: FDA-Public Use
  Company Number: US-NOVEN PHARMACEUTICALS, INC.-2021-NOV-US003387

PATIENT
  Age: 5 Year
  Sex: Male

DRUGS (4)
  1. DAYTRANA [Suspect]
     Active Substance: METHYLPHENIDATE
     Indication: ATTENTION DEFICIT HYPERACTIVITY DISORDER
     Dosage: 15 MG/ 9HOURS, UNK
     Route: 062
     Dates: start: 202102
  2. DAYTRANA [Suspect]
     Active Substance: METHYLPHENIDATE
     Dosage: 10 MG/ 9HOURS, UNK
     Route: 062
     Dates: start: 2021, end: 202102
  3. DAYTRANA [Suspect]
     Active Substance: METHYLPHENIDATE
     Dosage: 10 MG/ 9HOURS, UNK
     Route: 062
     Dates: start: 202011, end: 202012
  4. DAYTRANA [Suspect]
     Active Substance: METHYLPHENIDATE
     Dosage: 15 MG/ 9HOURS, UNK
     Route: 062
     Dates: start: 202012

REACTIONS (11)
  - Device breakage [Not Recovered/Not Resolved]
  - Application site erythema [Not Recovered/Not Resolved]
  - Nervousness [Not Recovered/Not Resolved]
  - Application site irritation [Not Recovered/Not Resolved]
  - Application site rash [Not Recovered/Not Resolved]
  - Incorrect dose administered [Recovered/Resolved]
  - Off label use [Not Recovered/Not Resolved]
  - Product residue present [Not Recovered/Not Resolved]
  - Paranoia [Not Recovered/Not Resolved]
  - Device adhesion issue [Not Recovered/Not Resolved]
  - Hyperacusis [Not Recovered/Not Resolved]

NARRATIVE: CASE EVENT DATE: 202011
